FAERS Safety Report 6818992-X (Version None)
Quarter: 2010Q3

REPORT INFORMATION
  Report Type: 
  Country: None (occurrence: None)
  Receive Date: 20100707
  Receipt Date: 20100701
  Transmission Date: 20110219
  Serious: Yes (Other)
  Sender: FDA-Public Use
  Company Number: US-ASTRAZENECA-2007UW21530

PATIENT
  Age: 52 Year
  Sex: Female
  Weight: 108.9 kg

DRUGS (25)
  1. SEROQUEL [Suspect]
     Indication: ANXIETY
     Route: 048
     Dates: start: 20000101, end: 20050901
  2. SEROQUEL [Suspect]
     Indication: SCHIZOPHRENIA
     Route: 048
     Dates: start: 20000101, end: 20050901
  3. SEROQUEL [Suspect]
     Indication: DEPRESSION
     Route: 048
     Dates: start: 20000101, end: 20050901
  4. SEROQUEL [Suspect]
     Route: 048
     Dates: start: 20000201, end: 20050805
  5. SEROQUEL [Suspect]
     Route: 048
     Dates: start: 20000201, end: 20050805
  6. SEROQUEL [Suspect]
     Route: 048
     Dates: start: 20000201, end: 20050805
  7. SEROQUEL [Suspect]
     Dosage: 100 MG TO 200 MG
     Route: 048
     Dates: start: 20020111
  8. SEROQUEL [Suspect]
     Dosage: 100 MG TO 200 MG
     Route: 048
     Dates: start: 20020111
  9. SEROQUEL [Suspect]
     Dosage: 100 MG TO 200 MG
     Route: 048
     Dates: start: 20020111
  10. DIOVAN [Concomitant]
     Route: 048
     Dates: start: 20011214
  11. GLUCOTROL [Concomitant]
     Route: 048
     Dates: start: 20020320
  12. NEURONTIN [Concomitant]
     Route: 048
     Dates: start: 20020417
  13. PREMARIN [Concomitant]
     Dosage: 0.625 MG TO 1.25 MG
     Route: 048
     Dates: start: 20000713
  14. NEXIUM [Concomitant]
     Route: 048
     Dates: start: 20020320
  15. EFFEXOR [Concomitant]
     Route: 048
  16. LORAZEPAM [Concomitant]
     Dosage: STRENGTH 1 MG
     Route: 048
     Dates: start: 20000713
  17. REMERON [Concomitant]
     Route: 048
     Dates: start: 20020111
  18. MECLIZINE [Concomitant]
     Route: 048
     Dates: start: 20020111
  19. RISPERDAL [Concomitant]
     Indication: DEPRESSION
     Dates: start: 20061101, end: 20090101
  20. HALDOL [Concomitant]
     Dates: start: 20100401
  21. THORAZINE [Concomitant]
     Dates: start: 20090101
  22. RANITIDINE [Concomitant]
     Dates: start: 20100101
  23. TRAVADINE [Concomitant]
     Dates: start: 20080101
  24. WELLBUTRIN [Concomitant]
     Dates: start: 19900101
  25. RESAPAN [Concomitant]
     Dates: start: 20010101, end: 20100101

REACTIONS (9)
  - BLOOD CHOLESTEROL INCREASED [None]
  - DIABETES MELLITUS INADEQUATE CONTROL [None]
  - DIABETIC COMPLICATION [None]
  - HYPERGLYCAEMIA [None]
  - HYPERLIPIDAEMIA [None]
  - LEG AMPUTATION [None]
  - NEUROPATHY PERIPHERAL [None]
  - STAPHYLOCOCCAL INFECTION [None]
  - TYPE 2 DIABETES MELLITUS [None]
